FAERS Safety Report 7562394-8 (Version None)
Quarter: 2011Q2

REPORT INFORMATION
  Report Type: 
  Country: None (occurrence: None)
  Receive Date: 20110525
  Receipt Date: 20110331
  Transmission Date: 20111010
  Serious: No
  Sender: FDA-Public Use
  Company Number: 326048

PATIENT
  Age: 51 Year
  Sex: Male

DRUGS (1)
  1. VICTOZA [Suspect]
     Indication: PRODUCT USED FOR UNKNOWN INDICATION
     Dosage: 0.6 MG; 1.2 MG ; 1.8 MG; QD SUBCUTANEOUS
     Route: 058

REACTIONS (4)
  - RASH [None]
  - DECREASED APPETITE [None]
  - NAUSEA [None]
  - INJECTION SITE PRURITUS [None]
